FAERS Safety Report 7005987-9 (Version None)
Quarter: 2010Q3

REPORT INFORMATION
  Report Type: 
  Country: None (occurrence: None)
  Receive Date: 20100921
  Receipt Date: 20100909
  Transmission Date: 20110219
  Serious: Yes (Other)
  Sender: FDA-Public Use
  Company Number: US-MYLANLABS-2010S1010822

PATIENT
  Age: 14 Year
  Sex: Female
  Weight: 56.16 kg

DRUGS (1)
  1. AMNESTEEM [Suspect]
     Route: 048
     Dates: start: 20100101, end: 20100301

REACTIONS (2)
  - DEPRESSION [None]
  - SUICIDAL IDEATION [None]
